FAERS Safety Report 8416565-9 (Version None)
Quarter: 2012Q2

REPORT INFORMATION
  Report Type: 
  Country: None (occurrence: None)
  Receive Date: 20120323
  Receipt Date: 20110214
  Transmission Date: 20120825
  Serious: Yes (Other)
  Sender: FDA-Public Use
  Company Number: 163-21880-11021835

PATIENT
  Age: 61 Year
  Sex: Female
  Weight: 76.66 kg

DRUGS (5)
  1. CALCIUM ACETATE [Concomitant]
  2. ARANESP [Concomitant]
  3. REVLIMID [Suspect]
     Indication: MYELOFIBROSIS
     Dosage: 25 MG, 1 IN 1 D, PO
     Route: 048
     Dates: start: 20110210
  4. WARFARIN SODIUM [Concomitant]
  5. LEVOTHYROXINE SODIUM [Concomitant]

REACTIONS (2)
  - MUSCLE SPASMS [None]
  - RASH GENERALISED [None]
